FAERS Safety Report 4448252-6 (Version None)
Quarter: 2004Q3

REPORT INFORMATION
  Report Type: 
  Country: None (occurrence: None)
  Receive Date: 20040910
  Receipt Date: 20040820
  Transmission Date: 20050211
  Serious: Yes (Hospitalization, Other)
  Sender: FDA-Public Use
  Company Number: 200410593BCA

PATIENT
  Age: 53 Year
  Sex: Female
  Weight: 117 kg

DRUGS (14)
  1. GAMUNEX [Suspect]
     Indication: TOXIC EPIDERMAL NECROLYSIS
     Dosage: SEE IMAGE
     Route: 042
     Dates: start: 20040713, end: 20040714
  2. GAMUNEX [Suspect]
     Indication: TOXIC EPIDERMAL NECROLYSIS
     Dosage: SEE IMAGE
     Route: 042
     Dates: start: 20040714
  3. GAMUNEX [Suspect]
     Indication: TOXIC EPIDERMAL NECROLYSIS
     Dosage: SEE IMAGE
     Route: 042
     Dates: start: 20040714
  4. GAMUNEX [Suspect]
     Indication: TOXIC EPIDERMAL NECROLYSIS
     Dosage: SEE IMAGE
     Route: 042
     Dates: start: 20040715
  5. GAMUNEX [Suspect]
  6. GAMUNEX [Suspect]
  7. GAMUNEX [Suspect]
  8. VALTREX [Concomitant]
  9. METHADONE HCL [Concomitant]
  10. DIOVAN [Concomitant]
  11. ACTONEL [Concomitant]
  12. GRAVOL TAB [Concomitant]
  13. CAELYX [Concomitant]
  14. BIOPLEX MOUTHWASH [Concomitant]

REACTIONS (3)
  - COOMBS DIRECT TEST POSITIVE [None]
  - HAEMOGLOBIN DECREASED [None]
  - HAEMOLYSIS [None]
